FAERS Safety Report 7259841-8 (Version None)
Quarter: 2011Q1

REPORT INFORMATION
  Report Type: 
  Country: None (occurrence: None)
  Receive Date: 20110130
  Receipt Date: 20100913
  Transmission Date: 20110831
  Serious: No
  Sender: FDA-Public Use
  Company Number: US-ABBOTT-10P-163-0671236-00

PATIENT
  Sex: Female
  Weight: 63.56 kg

DRUGS (15)
  1. PREDNISONE [Concomitant]
     Dosage: 40-50MG-1 IN 1 DAYS
  2. BUSPAR [Concomitant]
     Indication: PRODUCT USED FOR UNKNOWN INDICATION
  3. LOMOTIL [Concomitant]
     Indication: PRODUCT USED FOR UNKNOWN INDICATION
  4. HUMIRA [Suspect]
     Indication: COLITIS ULCERATIVE
     Dates: start: 20100901
  5. POTASSIUM [Concomitant]
     Indication: PRODUCT USED FOR UNKNOWN INDICATION
  6. GLIMEPIRIDE [Suspect]
     Indication: BLOOD GLUCOSE
     Dates: start: 20100910, end: 20100911
  7. NASONEX [Concomitant]
     Indication: PRODUCT USED FOR UNKNOWN INDICATION
  8. ZOLOFT [Concomitant]
     Indication: PRODUCT USED FOR UNKNOWN INDICATION
  9. ASMANEX TWISTHALER [Concomitant]
     Indication: PRODUCT USED FOR UNKNOWN INDICATION
  10. GLIMEPIRIDE [Suspect]
  11. PREDNISONE [Concomitant]
     Indication: COLITIS ULCERATIVE
  12. ASCOL [Concomitant]
     Indication: PRODUCT USED FOR UNKNOWN INDICATION
  13. AVAPRO [Concomitant]
     Indication: PRODUCT USED FOR UNKNOWN INDICATION
  14. VYTORIN [Suspect]
     Indication: BLOOD CHOLESTEROL INCREASED
     Dates: start: 20100910, end: 20100911
  15. VYTORIN [Suspect]

REACTIONS (13)
  - VISION BLURRED [None]
  - DIARRHOEA [None]
  - BLOOD GLUCOSE INCREASED [None]
  - INJECTION SITE HAEMATOMA [None]
  - MALAISE [None]
  - VOMITING [None]
  - HYPOTENSION [None]
  - DECREASED APPETITE [None]
  - ABDOMINAL PAIN UPPER [None]
  - INJECTION SITE HAEMORRHAGE [None]
  - DIZZINESS [None]
  - ASTHENIA [None]
  - HEADACHE [None]
